FAERS Safety Report 14569754 (Version 1)
Quarter: 2018Q1

REPORT INFORMATION
  Report Type: Spontaneous
  Country: US (occurrence: US)
  Receive Date: 20180224
  Receipt Date: 20180224
  Transmission Date: 20180509
  Serious: No
  Sender: FDA-Public Use
  Company Number: US-TEVA-2018-US-853713

PATIENT
  Age: 80 Year
  Sex: Female

DRUGS (1)
  1. ALENDRONATE SODIUM. [Suspect]
     Active Substance: ALENDRONATE SODIUM
     Indication: OSTEOPOROSIS
     Dosage: DOSAGE STRENGTH: 70
     Route: 065
     Dates: end: 20180119

REACTIONS (2)
  - Tooth loss [Recovering/Resolving]
  - Bleeding time prolonged [Unknown]

NARRATIVE: CASE EVENT DATE: 20180123
